FAERS Safety Report 13510250 (Version 4)
Quarter: 2017Q2

REPORT INFORMATION
  Report Type: Spontaneous
  Country: US (occurrence: US)
  Receive Date: 20170503
  Receipt Date: 20170524
  Transmission Date: 20170830
  Serious: Yes (Other)
  Sender: FDA-Public Use
  Company Number: US-JNJFOC-20170427230

PATIENT
  Age: 23 Year
  Sex: Male
  Weight: 104.33 kg

DRUGS (2)
  1. MENS ROGAINE EXTRA STRENGTH [Suspect]
     Active Substance: MINOXIDIL
     Route: 061
  2. MENS ROGAINE EXTRA STRENGTH [Suspect]
     Active Substance: MINOXIDIL
     Indication: HAIR GROWTH ABNORMAL
     Dosage: MORE THAN A CAPFULL
     Route: 061
     Dates: start: 20170101

REACTIONS (5)
  - Wrist fracture [Unknown]
  - Alopecia [Not Recovered/Not Resolved]
  - Heart rate increased [Unknown]
  - Overdose [Unknown]
  - Drug administered at inappropriate site [Not Recovered/Not Resolved]

NARRATIVE: CASE EVENT DATE: 20170101
